FAERS Safety Report 19909673 (Version 1)
Quarter: 2021Q4

REPORT INFORMATION
  Report Type: Spontaneous
  Country: CN (occurrence: CN)
  Receive Date: 20211002
  Receipt Date: 20211002
  Transmission Date: 20220304
  Serious: Yes (Other)
  Sender: FDA-Public Use
  Company Number: CN-TEIJIN-202102661_FE_P_1

PATIENT
  Age: 24 Year
  Sex: Male

DRUGS (1)
  1. FEBUXOSTAT [Suspect]
     Active Substance: FEBUXOSTAT
     Indication: Hyperuricaemia
     Dosage: UNK
     Route: 065

REACTIONS (4)
  - Congenital nephrogenic diabetes insipidus [Unknown]
  - Nephrolithiasis [Unknown]
  - Blood uric acid increased [Unknown]
  - Gout [Unknown]
